FAERS Safety Report 6860095-2 (Version None)
Quarter: 2010Q3

REPORT INFORMATION
  Report Type: 
  Country: None (occurrence: None)
  Receive Date: 20100720
  Receipt Date: 20100708
  Transmission Date: 20110219
  Serious: Yes (Other)
  Sender: FDA-Public Use
  Company Number: US-PFIZER INC-2010086128

PATIENT
  Sex: Male
  Weight: 108 kg

DRUGS (7)
  1. CHANTIX [Suspect]
     Indication: SMOKING CESSATION THERAPY
     Dosage: 0.5 MG, 1X/DAY
     Route: 048
     Dates: start: 20091101
  2. CHANTIX [Suspect]
     Dosage: 1 MG, 2X/DAY
     Route: 048
     Dates: end: 20100201
  3. CHANTIX [Suspect]
     Dosage: 0.5 MG, 1X/DAY
     Dates: start: 20100601
  4. CHANTIX [Suspect]
     Dosage: 1 MG, 2X/DAY
     Route: 048
  5. PLAVIX [Suspect]
     Dosage: UNK
     Dates: start: 20100101, end: 20100101
  6. OMEPRAZOLE [Concomitant]
     Indication: ABDOMINAL DISCOMFORT
     Dosage: UNK
  7. RANITIDINE [Concomitant]
     Indication: ABDOMINAL DISCOMFORT
     Dosage: UNK

REACTIONS (2)
  - BURNING SENSATION [None]
  - PERIPHERAL ARTERIAL OCCLUSIVE DISEASE [None]
